FAERS Safety Report 12834121 (Version 1)
Quarter: 2016Q4

REPORT INFORMATION
  Report Type: Spontaneous
  Country: IT (occurrence: IT)
  Receive Date: 20161010
  Receipt Date: 20161010
  Transmission Date: 20170207
  Serious: Yes (Other)
  Sender: FDA-Public Use
  Company Number: IT-TEVA-699826ACC

PATIENT
  Age: 48 Year
  Sex: Female
  Weight: 76 kg

DRUGS (2)
  1. CARBOLITHIUM - TEVA ITALIA S.R.L. [Suspect]
     Active Substance: LITHIUM CARBONATE
     Indication: BIPOLAR DISORDER
     Dosage: 1500 MILLIGRAM DAILY;
     Route: 048
     Dates: start: 20080101, end: 20160801
  2. DEPAKIN CHRONO [Concomitant]
     Active Substance: VALPROIC ACID
     Indication: PRODUCT USED FOR UNKNOWN INDICATION
     Dosage: DAILY DOSE 500-750 MG
     Route: 048
     Dates: start: 20130328, end: 20160927

REACTIONS (4)
  - Nephrogenic diabetes insipidus [Recovered/Resolved]
  - Polydipsia [Recovered/Resolved]
  - Blood antidiuretic hormone increased [Recovered/Resolved]
  - Blood osmolarity increased [Recovered/Resolved]

NARRATIVE: CASE EVENT DATE: 20150801
